FAERS Safety Report 5803770-0 (Version None)
Quarter: 2008Q3

REPORT INFORMATION
  Report Type: 
  Country: None (occurrence: None)
  Receive Date: 20080708
  Receipt Date: 20080402
  Transmission Date: 20090109
  Serious: No
  Sender: FDA-Public Use
  Company Number: US-AMGEN-KDL272567

PATIENT
  Sex: Female

DRUGS (2)
  1. KINERET [Suspect]
     Indication: RHEUMATOID ARTHRITIS
     Route: 058
     Dates: start: 20060901
  2. METHOTREXATE [Concomitant]

REACTIONS (3)
  - NASAL CONGESTION [None]
  - OROPHARYNGEAL PAIN [None]
  - SINUS HEADACHE [None]
